FAERS Safety Report 4505288-4 (Version None)
Quarter: 2004Q4

REPORT INFORMATION
  Report Type: 
  Country: None (occurrence: None)
  Receive Date: 20041018
  Receipt Date: 20030919
  Transmission Date: 20050328
  Serious: Yes (Other)
  Sender: FDA-Public Use
  Company Number: PHEH2003US08772

PATIENT
  Age: 65 Year
  Sex: Female
  Weight: 62.1 kg

DRUGS (1)
  1. MIACALCIN [Suspect]
     Indication: OSTEOPOROSIS
     Dosage: 1 SPRAY QD, INTRANASAL
     Route: 045
     Dates: start: 20030109, end: 20030710

REACTIONS (1)
  - HEARING IMPAIRED [None]
